FAERS Safety Report 11992254 (Version 1)
Quarter: 2016Q1

REPORT INFORMATION
  Report Type: Spontaneous
  Country: US (occurrence: US)
  Receive Date: 20160203
  Receipt Date: 20160203
  Transmission Date: 20160526
  Serious: No
  Sender: FDA-Public Use
  Company Number: US-JNJFOC-20160100450

PATIENT
  Sex: Female

DRUGS (2)
  1. TYLENOL [Suspect]
     Active Substance: ACETAMINOPHEN
     Indication: RESPIRATORY TRACT CONGESTION
     Route: 065
  2. TYLENOL [Suspect]
     Active Substance: ACETAMINOPHEN
     Indication: NASOPHARYNGITIS
     Route: 065

REACTIONS (4)
  - Product use issue [Not Recovered/Not Resolved]
  - Therapeutic response unexpected [Unknown]
  - Off label use [Not Recovered/Not Resolved]
  - Exposure during pregnancy [Not Recovered/Not Resolved]
